FAERS Safety Report 4626465-8 (Version None)
Quarter: 2005Q2

REPORT INFORMATION
  Report Type: 
  Country: None (occurrence: None)
  Receive Date: 20050404
  Receipt Date: 20050308
  Transmission Date: 20051028
  Serious: Yes (Other)
  Sender: FDA-Public Use
  Company Number: US-AMGEN-US119850

PATIENT
  Sex: Male

DRUGS (4)
  1. ENBREL [Suspect]
     Indication: PSORIASIS
     Route: 065
     Dates: start: 20050208, end: 20050301
  2. TOPROL-XL [Concomitant]
  3. LISINOPRIL [Concomitant]
     Dates: start: 20050102, end: 20050307
  4. PREVACID [Concomitant]

REACTIONS (4)
  - MULTIPLE SCLEROSIS [None]
  - NIPPLE PAIN [None]
  - UPPER RESPIRATORY TRACT INFECTION [None]
  - URINARY HESITATION [None]
